FAERS Safety Report 9720800 (Version 2)
Quarter: 2013Q4

REPORT INFORMATION
  Report Type: Spontaneous
  Country: US (occurrence: US)
  Receive Date: 20131129
  Receipt Date: 20131213
  Transmission Date: 20140711
  Serious: Yes (Other)
  Sender: FDA-Public Use
  Company Number: US-009507513-1311USA011556

PATIENT
  Age: 58 Year
  Sex: Male
  Weight: 75.28 kg

DRUGS (2)
  1. JANUMET [Suspect]
     Dosage: UNK
     Route: 048
  2. CRESTOR [Concomitant]

REACTIONS (3)
  - Pancreatitis [Unknown]
  - Abdominal pain [Recovered/Resolved]
  - Underweight [Recovered/Resolved]
